FAERS Safety Report 5279645-5 (Version None)
Quarter: 2007Q1

REPORT INFORMATION
  Report Type: 
  Country: None (occurrence: None)
  Receive Date: 20070323
  Receipt Date: 20070316
  Transmission Date: 20070707
  Serious: Yes (Death, Hospitalization)
  Sender: FDA-Public Use
  Company Number: 153704USA

PATIENT
  Age: 58 Year
  Sex: Male
  Weight: 71.7 kg

DRUGS (17)
  1. FLUOROURACIL [Suspect]
     Indication: PANCREATIC CARCINOMA METASTATIC
     Dosage: 400 MG/M2 EVERY TWO WEEKS (400 MG/M2), INTRAVENOUS
     Route: 042
     Dates: start: 20070208, end: 20070210
  2. FOLINIC ACID [Suspect]
     Indication: PANCREATIC CARCINOMA METASTATIC
     Dosage: 400 MG/M2 EVERY TWO WEEKS 400 MG/M2)
     Dates: start: 20070208
  3. SUTENT [Suspect]
     Indication: PANCREATIC CARCINOMA METASTATIC
     Dosage: 37.5 MG/DAY, ORAL
     Route: 048
     Dates: start: 20070208, end: 20070209
  4. OXALIPLATIN [Suspect]
     Indication: PANCREATIC CARCINOMA METASTATIC
     Dosage: 8.5 MG/M2 EVERY TWO WEEKS (8.5 MG/M2), INTRAVENOUS
     Route: 042
     Dates: start: 20070208
  5. MACROGOL [Concomitant]
  6. PANCREATIN TRIPLE STRENGTH CAP [Concomitant]
  7. OXYCODONE HCL [Concomitant]
  8. OXYCODONE HCL [Concomitant]
  9. MEGESTROL ACETATE [Concomitant]
  10. DIMETICONE, ACTIVATED [Concomitant]
  11. PROCTOSOL [Concomitant]
  12. ANUSOL [Concomitant]
  13. MYLANTA [Concomitant]
  14. ONDANSETRON [Concomitant]
  15. MAGNESIUM HYDROXIDE TAB [Concomitant]
  16. MULTI-VITAMIN [Concomitant]
  17. .. [Concomitant]

REACTIONS (8)
  - ABDOMINAL PAIN [None]
  - BLOOD CALCIUM DECREASED [None]
  - DISEASE PROGRESSION [None]
  - GENERAL PHYSICAL HEALTH DETERIORATION [None]
  - HAEMOGLOBIN DECREASED [None]
  - MENTAL STATUS CHANGES [None]
  - URINE OUTPUT DECREASED [None]
  - VOMITING [None]
